FAERS Safety Report 19508781 (Version 1)
Quarter: 2021Q3

REPORT INFORMATION
  Report Type: Report from Study
  Country: FR (occurrence: FR)
  Receive Date: 20210708
  Receipt Date: 20210708
  Transmission Date: 20211014
  Serious: Yes (Other)
  Sender: FDA-Public Use
  Company Number: FR-SA-2021SA222261

PATIENT
  Age: 73 Year
  Sex: Female
  Weight: 63 kg

DRUGS (19)
  1. ISATUXIMAB [Suspect]
     Active Substance: ISATUXIMAB
     Dosage: 10 MG/KG, QW
     Route: 042
     Dates: start: 20180727, end: 20180727
  2. DEXAMETHASONE. [Suspect]
     Active Substance: DEXAMETHASONE
     Indication: PLASMA CELL MYELOMA
     Dosage: 20 MG, QW
     Route: 065
  3. SMECTA [Concomitant]
     Active Substance: MONTMORILLONITE
     Dosage: UNK
     Route: 048
     Dates: start: 20190222
  4. BORTEZOMIB. [Suspect]
     Active Substance: BORTEZOMIB
     Indication: PLASMA CELL MYELOMA
     Dosage: 1.3 MG/M2, OTHER (DAY 1, 4, 8, 11, 22, 25, 29 AND 32)
     Route: 058
  5. MAGNE B6 [Concomitant]
     Active Substance: MAGNESIUM\PYRIDOXINE
     Indication: PROPHYLAXIS
     Dosage: UNK
     Route: 048
     Dates: start: 20180727
  6. OMEPRAZOLE. [Concomitant]
     Active Substance: OMEPRAZOLE
     Indication: PROPHYLAXIS
     Dosage: UNK
     Route: 048
     Dates: start: 20180727
  7. METOCLOPRAMIDE. [Concomitant]
     Active Substance: METOCLOPRAMIDE
     Indication: PROPHYLAXIS
     Dosage: UNK
     Route: 048
     Dates: start: 20180727
  8. DEXAMETHASONE. [Suspect]
     Active Substance: DEXAMETHASONE
     Dosage: 20 MG, QW
     Route: 042
     Dates: start: 20180727, end: 20180727
  9. BACTRIM [Concomitant]
     Active Substance: SULFAMETHOXAZOLE\TRIMETHOPRIM
     Indication: PROPHYLAXIS
     Dosage: UNK
     Route: 048
     Dates: start: 20180727
  10. ZELITREX [Concomitant]
     Active Substance: VALACYCLOVIR HYDROCHLORIDE
     Indication: PROPHYLAXIS
     Dosage: UNK
     Route: 048
     Dates: start: 20180727
  11. CEFUROXIME. [Concomitant]
     Active Substance: CEFUROXIME
     Dosage: UNK
     Route: 048
     Dates: start: 20210506
  12. BORTEZOMIB. [Suspect]
     Active Substance: BORTEZOMIB
     Dosage: 1.30 MG/M2, OTHER (DAY 1, 4, 8, 11, 22, 25, 29 AND 32)
     Route: 058
     Dates: start: 20180727, end: 20180727
  13. ISATUXIMAB [Suspect]
     Active Substance: ISATUXIMAB
     Indication: PLASMA CELL MYELOMA
     Dosage: 10 MG/KG, QOW
     Route: 042
     Dates: start: 20210603, end: 20210603
  14. LENALIDOMIDE [Suspect]
     Active Substance: LENALIDOMIDE
     Indication: PLASMA CELL MYELOMA
     Dosage: 25 MG, QD
     Route: 048
  15. LENALIDOMIDE [Suspect]
     Active Substance: LENALIDOMIDE
     Dosage: 25 MG, QD
     Route: 048
     Dates: start: 20180727, end: 20180802
  16. IMODIUM [Concomitant]
     Active Substance: LOPERAMIDE HYDROCHLORIDE
     Dosage: UNK
     Route: 048
     Dates: start: 20190222
  17. KARDEGIC [Concomitant]
     Active Substance: ASPIRIN DL-LYSINE
     Indication: PROPHYLAXIS
     Dosage: UNK
     Route: 048
     Dates: start: 20180908
  18. PIASCLEDINE [GLYCINE MAX SEED OIL;PERSEA AMERICANA OIL] [Concomitant]
     Active Substance: AVOCADO OIL\SOYBEAN OIL
     Dosage: UNK
     Route: 048
  19. DIFFU K [Concomitant]
     Active Substance: POTASSIUM CHLORIDE
     Indication: PROPHYLAXIS
     Dosage: UNK
     Route: 048
     Dates: start: 20200131

REACTIONS (1)
  - Colorectal cancer [Not Recovered/Not Resolved]

NARRATIVE: CASE EVENT DATE: 20210628
